FAERS Safety Report 9321840 (Version 1)
Quarter: 2013Q2

REPORT INFORMATION
  Report Type: Report from Study
  Country: US (occurrence: US)
  Receive Date: 20130531
  Receipt Date: 20130531
  Transmission Date: 20140414
  Serious: No
  Sender: FDA-Public Use
  Company Number: US-ABBOTT-13P-163-1034724-00

PATIENT
  Sex: Male

DRUGS (1)
  1. MARINOL [Suspect]
     Indication: NEOPLASM MALIGNANT
     Dates: end: 20121231

REACTIONS (4)
  - Eating disorder [Not Recovered/Not Resolved]
  - Insomnia [Not Recovered/Not Resolved]
  - Medication error [Not Recovered/Not Resolved]
  - Drug dose omission [Not Recovered/Not Resolved]
